FAERS Safety Report 23799151 (Version 2)
Quarter: 2024Q2

REPORT INFORMATION
  Report Type: Report from Study
  Country: GB (occurrence: GB)
  Receive Date: 20240430
  Receipt Date: 20240531
  Transmission Date: 20240716
  Serious: Yes (Other)
  Sender: FDA-Public Use
  Company Number: GB-JNJFOC-20240359765

PATIENT
  Age: 75 Year
  Sex: Male

DRUGS (3)
  1. ZOLEDRONIC ACID [Suspect]
     Active Substance: ZOLEDRONIC ACID
     Indication: Prophylaxis
     Dosage: 1 DOSAGE FORM, MONTHLY (1 TIME EVERY 1 MONTHS)
     Route: 042
     Dates: start: 20240313
  2. ERLEADA [Suspect]
     Active Substance: APALUTAMIDE
     Indication: Prostate cancer
     Dosage: 240 MILLIGRAM, QD (1 TIME EVERY 1 DAY)
     Route: 048
     Dates: start: 20231222
  3. SIMVASTATIN [Concomitant]
     Active Substance: SIMVASTATIN
     Indication: Blood cholesterol
     Dosage: UNK
     Route: 048

REACTIONS (4)
  - Hot flush [Not Recovered/Not Resolved]
  - Hypertension [Recovering/Resolving]
  - Influenza like illness [Recovered/Resolved]
  - Fatigue [Recovering/Resolving]

NARRATIVE: CASE EVENT DATE: 20240301
